FAERS Safety Report 7642858-9 (Version None)
Quarter: 2011Q3

REPORT INFORMATION
  Report Type: 
  Country: None (occurrence: None)
  Receive Date: 20110728
  Receipt Date: 20110718
  Transmission Date: 20111222
  Serious: Yes (Hospitalization)
  Sender: FDA-Public Use
  Company Number: US-US-EMD SERONO, INC.-237935K07USA

PATIENT
  Sex: Male

DRUGS (5)
  1. METOPROLOL TARTRATE [Concomitant]
     Indication: HYPERTENSION
  2. TEGRETOL [Concomitant]
     Indication: MUSCLE SPASMS
  3. VITAMIN D [Concomitant]
  4. REBIF [Suspect]
     Indication: SECONDARY PROGRESSIVE MULTIPLE SCLEROSIS
     Route: 058
     Dates: start: 20070118
  5. AVAPRO [Concomitant]
     Indication: HYPERTENSION

REACTIONS (1)
  - INTERVERTEBRAL DISC DEGENERATION [None]
